FAERS Safety Report 13137928 (Version 1)
Quarter: 2017Q1

REPORT INFORMATION
  Report Type: Spontaneous
  Country: JP (occurrence: JP)
  Receive Date: 20170123
  Receipt Date: 20170123
  Transmission Date: 20170428
  Serious: Yes (Hospitalization)
  Sender: FDA-Public Use
  Company Number: JP-ELI_LILLY_AND_COMPANY-JP201612003937

PATIENT
  Age: 66 Year
  Sex: Male
  Weight: 80 kg

DRUGS (21)
  1. CILOSTAZOL. [Concomitant]
     Active Substance: CILOSTAZOL
     Dosage: 100MG/DAY
     Route: 048
     Dates: end: 20160516
  2. GASTER [Concomitant]
     Active Substance: FAMOTIDINE
     Dosage: 1G/DAY
     Route: 048
     Dates: end: 20151223
  3. NICERGOLINE [Concomitant]
     Active Substance: NICERGOLINE
     Dosage: 15MG/DAY
     Route: 048
     Dates: start: 20151225, end: 20160707
  4. FRANDOL [Concomitant]
     Active Substance: ISOSORBIDE DINITRATE
     Dosage: 40MG/DAY
     Route: 050
     Dates: start: 20151225
  5. BAYASPIRIN [Concomitant]
     Active Substance: ASPIRIN
     Dosage: 100MG/DAY
     Route: 048
     Dates: start: 20160517
  6. ITOROL [Concomitant]
     Active Substance: ISOSORBIDE MONONITRATE
     Dosage: 40MG/DAY
     Route: 048
     Dates: end: 20151224
  7. PANTOSIN [Concomitant]
     Active Substance: PANTETHINE
     Dosage: 1G/DAY
     Route: 048
  8. PRASUGREL HYDROCHLORIDE [Suspect]
     Active Substance: PRASUGREL HYDROCHLORIDE
     Indication: PRODUCT USED FOR UNKNOWN INDICATION
     Dosage: 3.75 MG, QD
     Route: 048
     Dates: start: 20160517
  9. SERMION                            /00396401/ [Concomitant]
     Active Substance: NICERGOLINE
     Dosage: 1G/DAY
     Route: 048
     Dates: end: 20151224
  10. EUGLUCON [Concomitant]
     Active Substance: GLYBURIDE
     Dosage: 1.25MG/DAY
     Route: 048
     Dates: end: 20151125
  11. EDOXABAN [Suspect]
     Active Substance: EDOXABAN TOSYLATE
     Dosage: 60 MG, QD
     Route: 048
     Dates: start: 20151224
  12. DIGOXIN. [Concomitant]
     Active Substance: DIGOXIN
     Dosage: 0.125MG/DAY
     Route: 048
  13. METGLUCO [Concomitant]
     Active Substance: METFORMIN HYDROCHLORIDE
     Dosage: 500MG/DAY
     Route: 048
     Dates: start: 20151126, end: 20160128
  14. FUROSEMIDE. [Concomitant]
     Active Substance: FUROSEMIDE
     Dosage: 40MG/DAY
     Route: 048
  15. MICARDIS [Concomitant]
     Active Substance: TELMISARTAN
     Dosage: 20MG/DAY
     Route: 048
     Dates: start: 20160901
  16. EDOXABAN [Suspect]
     Active Substance: EDOXABAN TOSYLATE
     Indication: ATRIAL FIBRILLATION
     Dosage: 30 MG, QD
     Route: 048
     Dates: start: 20151026, end: 20151223
  17. MEVALOTIN [Concomitant]
     Active Substance: PRAVASTATIN SODIUM
     Dosage: 1G/DAY
     Route: 048
  18. GLACTIV [Concomitant]
     Active Substance: SITAGLIPTIN
     Dosage: 50MG/DAY
     Route: 048
     Dates: end: 20160707
  19. JANUVIA [Concomitant]
     Active Substance: SITAGLIPTIN PHOSPHATE
     Dosage: 50MG/DAY
     Route: 048
     Dates: start: 20151126
  20. METGLUCO [Concomitant]
     Active Substance: METFORMIN HYDROCHLORIDE
     Dosage: 750MG/DAY
     Route: 048
     Dates: start: 20160129
  21. NEXIUM [Concomitant]
     Active Substance: ESOMEPRAZOLE MAGNESIUM
     Dosage: 20MG/DAY
     Route: 048
     Dates: start: 20151224

REACTIONS (2)
  - Colon adenoma [Recovered/Resolved]
  - Haemorrhage subcutaneous [Recovered/Resolved]

NARRATIVE: CASE EVENT DATE: 20160524
